FAERS Safety Report 22136736 (Version 1)
Quarter: 2023Q1

REPORT INFORMATION
  Report Type: Spontaneous
  Country: US (occurrence: None)
  Receive Date: 20230323
  Receipt Date: 20230323
  Transmission Date: 20230418
  Serious: No
  Sender: FDA-Public Use
  Company Number: None

PATIENT
  Age: 81 Year
  Sex: Female
  Weight: 68.85 kg

DRUGS (2)
  1. DEXLANSOPRAZOLE [Suspect]
     Active Substance: DEXLANSOPRAZOLE
     Indication: Gastrooesophageal reflux disease
     Dosage: FREQUENCY : DAILY;?
     Route: 048
  2. DEXILANT [Concomitant]
     Active Substance: DEXLANSOPRAZOLE
     Dates: start: 20200513

REACTIONS (7)
  - Treatment failure [None]
  - Product substitution issue [None]
  - Gastrooesophageal reflux disease [None]
  - Nausea [None]
  - Vomiting [None]
  - Flatulence [None]
  - Eructation [None]

NARRATIVE: CASE EVENT DATE: 20230223
